FAERS Safety Report 6147863-X (Version None)
Quarter: 2009Q2

REPORT INFORMATION
  Report Type: 
  Country: None (occurrence: None)
  Receive Date: 20090402
  Receipt Date: 20090318
  Transmission Date: 20091009
  Serious: Yes (Life-Threatening)
  Sender: FDA-Public Use
  Company Number: 2009S1004867

PATIENT
  Age: 49 Year
  Sex: Male

DRUGS (13)
  1. CITALOPRAM HYDROBROMIDE [Suspect]
     Indication: ANXIETY
     Dosage: 20 MG; DAILY; ORAL
     Route: 048
     Dates: start: 20081101, end: 20090226
  2. CITALOPRAM HYDROBROMIDE [Suspect]
     Indication: MOOD SWINGS
     Dosage: 20 MG; DAILY; ORAL
     Route: 048
     Dates: start: 20081101, end: 20090226
  3. ENALAPRIL MALEATE [Suspect]
     Indication: HYPERTENSION
     Dosage: 40 MG; ORAL
     Route: 048
     Dates: end: 20090226
  4. INDAPAMIDE [Suspect]
     Indication: HYPERTENSION
     Dosage: 1.5 MG; DAILY; ORAL
     Route: 048
     Dates: start: 20080601, end: 20090226
  5. OXCARBAZEPINE [Suspect]
     Indication: EPILEPSY
     Dosage: 1.2 G; TWICE A DAY; ORAL, 300 MG; DAILY; ORAL
     Route: 048
     Dates: end: 20090226
  6. OXCARBAZEPINE [Suspect]
     Indication: EPILEPSY
     Dosage: 1.2 G; TWICE A DAY; ORAL, 300 MG; DAILY; ORAL
     Route: 048
     Dates: end: 20090226
  7. AMITRIPTLINE HCL [Suspect]
     Indication: ANXIETY
     Dosage: 25 MG; DAILY; ORAL
     Route: 048
     Dates: end: 20090226
  8. AMITRIPTLINE HCL [Suspect]
     Indication: MOOD SWINGS
     Dosage: 25 MG; DAILY; ORAL
     Route: 048
     Dates: end: 20090226
  9. AMLODIPINE [Concomitant]
  10. IBUPROFEN [Concomitant]
  11. PARACETAMOL [Concomitant]
  12. RANITIDINE [Concomitant]
  13. SIMVASTATIN [Concomitant]

REACTIONS (3)
  - AGGRESSION [None]
  - CONFUSIONAL STATE [None]
  - HYPONATRAEMIA [None]
